FAERS Safety Report 9714226 (Version 2)
Quarter: 2013Q4

REPORT INFORMATION
  Report Type: Spontaneous
  Country: US (occurrence: US)
  Receive Date: 20131126
  Receipt Date: 20131126
  Transmission Date: 20140711
  Serious: Yes (Other)
  Sender: FDA-Public Use
  Company Number: US-GILEAD-2008-0018664

PATIENT
  Age: 36 Year
  Sex: Female

DRUGS (10)
  1. LETAIRIS [Suspect]
     Indication: PULMONARY ARTERIAL HYPERTENSION
     Route: 048
     Dates: start: 20080822
  2. LETAIRIS [Suspect]
     Route: 048
  3. DIAZEPAM [Concomitant]
  4. CODEINE PHOSPHATE [Concomitant]
  5. LEVOTHYROXINE [Concomitant]
  6. BACLOFEN [Concomitant]
  7. HYDROCHLOROTHIAZIDE [Concomitant]
  8. ALLOPURINOL [Concomitant]
  9. ASPIRIN [Concomitant]
  10. DIGOXIN [Concomitant]

REACTIONS (3)
  - Weight increased [None]
  - Swelling [None]
  - Oedema [None]
